FAERS Safety Report 22109767 (Version 1)
Quarter: 2023Q1

REPORT INFORMATION
  Report Type: Report from Study
  Country: CN (occurrence: CN)
  Receive Date: 20230317
  Receipt Date: 20230317
  Transmission Date: 20230417
  Serious: Yes (Death)
  Sender: FDA-Public Use
  Company Number: CN-SERVIER-S23002363

PATIENT

DRUGS (2)
  1. TIBSOVO [Suspect]
     Active Substance: IVOSIDENIB
     Indication: Bile duct cancer
     Dosage: UNK
     Route: 048
     Dates: start: 20221010
  2. TIBSOVO [Suspect]
     Active Substance: IVOSIDENIB
     Indication: Off label use

REACTIONS (2)
  - Hepatic failure [Fatal]
  - Off label use [Recovered/Resolved]

NARRATIVE: CASE EVENT DATE: 20221010
